FAERS Safety Report 4905413-7 (Version None)
Quarter: 2006Q1

REPORT INFORMATION
  Report Type: 
  Country: None (occurrence: None)
  Receive Date: 20060203
  Receipt Date: 20060127
  Transmission Date: 20060701
  Serious: Yes (Death)
  Sender: FDA-Public Use
  Company Number: 2006JP000134

PATIENT
  Age: 68 Year
  Sex: Female
  Weight: 42 kg

DRUGS (11)
  1. TACROLIMUS CAPSULES (TACROLIMUS) CAPSULE [Suspect]
     Indication: RHEUMATOID ARTHRITIS
     Dosage: 2 MG, UID/QD, ORAL
     Route: 048
     Dates: start: 20050620, end: 20050712
  2. PREDNISOLONE [Concomitant]
  3. AMLODIN (AMLODIPINE BESILATE) TABLET [Concomitant]
  4. OLMETEC (OLMESARTAN MEDOXOMIL) TABLET [Concomitant]
  5. LASIX /SWE/ (FUROSEMIDE) TABLET [Concomitant]
  6. DOXAZOSIN MESYLATE [Concomitant]
  7. SELBEX (TEPRENONE) TABLET [Concomitant]
  8. METHYCOBAL (MECOBALAMIN) TABLET [Concomitant]
  9. SLOW-K [Concomitant]
  10. BAKTAR (SULFAMETHOXAZOLE, TRIMETHOPRIM) TABLET [Concomitant]
  11. AZULFIDINE [Concomitant]

REACTIONS (5)
  - CARDIO-RESPIRATORY ARREST [None]
  - CEREBRAL INFARCTION [None]
  - PLATELET COUNT DECREASED [None]
  - RESPIRATORY DISORDER [None]
  - THERAPY NON-RESPONDER [None]
